FAERS Safety Report 7783410-4 (Version None)
Quarter: 2011Q3

REPORT INFORMATION
  Report Type: 
  Country: None (occurrence: None)
  Receive Date: 20110928
  Receipt Date: 20110926
  Transmission Date: 20111222
  Serious: Yes (Death, Hospitalization, Other)
  Sender: FDA-Public Use
  Company Number: JP-BAYER-2011-018927

PATIENT
  Age: 78 Year
  Sex: Male
  Weight: 70 kg

DRUGS (9)
  1. OMEPRAZOLE [Concomitant]
     Indication: PROPHYLAXIS AGAINST GASTROINTESTINAL ULCER
     Dosage: DAILY DOSE 20 MG
     Route: 048
     Dates: start: 20100427
  2. ASPIRIN [Concomitant]
     Route: 048
  3. NEXAVAR [Suspect]
     Indication: HEPATIC NEOPLASM MALIGNANT
     Dosage: 400 MG, BID
     Route: 048
     Dates: start: 20100427, end: 20110216
  4. AMLODIPINE [Concomitant]
     Indication: HYPERTENSION
     Dosage: DAILY DOSE 5 MG
     Route: 048
     Dates: start: 20110305
  5. URSO 250 [Concomitant]
     Indication: HEPATITIS C
     Dosage: DAILY DOSE 600 MG
     Route: 048
     Dates: start: 20110313
  6. DIOVAN [Concomitant]
     Indication: HYPERTENSION
     Dosage: DAILY DOSE 80 MG
     Route: 048
     Dates: start: 20110313
  7. LASIX [Concomitant]
     Indication: POLYURIA
     Dosage: DAILY DOSE 40 MG
     Route: 048
     Dates: start: 20110322
  8. LIPITOR [Concomitant]
     Indication: BLOOD CHOLESTEROL INCREASED
     Dosage: DAILY DOSE 10 MG
     Route: 048
     Dates: start: 20110322
  9. PERSANTIN [Concomitant]
     Indication: PROTEIN URINE
     Dosage: DAILY DOSE 300 MG
     Route: 048
     Dates: start: 20110316

REACTIONS (3)
  - NEPHROTIC SYNDROME [None]
  - PNEUMONIA [None]
  - GLOMERULONEPHRITIS MEMBRANOUS [None]
